FAERS Safety Report 5341008-1 (Version None)
Quarter: 2007Q2

REPORT INFORMATION
  Report Type: 
  Country: None (occurrence: None)
  Receive Date: 20070405
  Receipt Date: 20070125
  Transmission Date: 20071010
  Serious: No
  Sender: FDA-Public Use
  Company Number: US200701005072

PATIENT
  Age: 44 Year
  Sex: Female

DRUGS (8)
  1. CYMBALTA [Suspect]
     Dosage: SEE IMAGE
  2. ALLOPURINOL [Concomitant]
  3. INDOMETHACIN [Concomitant]
  4. RESTORIL [Concomitant]
  5. CLONIDINE [Concomitant]
  6. PAXIL CR [Concomitant]
  7. HYDROCHLOROTHIAZIDE [Concomitant]
  8. MOCLOBEMIDE (MOCLOBEMIDE) [Concomitant]

REACTIONS (4)
  - BLOOD PRESSURE INCREASED [None]
  - HEADACHE [None]
  - INSOMNIA [None]
  - MALAISE [None]
